FAERS Safety Report 5634883-4 (Version None)
Quarter: 2008Q1

REPORT INFORMATION
  Report Type: 
  Country: None (occurrence: None)
  Receive Date: 20080131
  Receipt Date: 20071105
  Transmission Date: 20080703
  Serious: No
  Sender: FDA-Public Use
  Company Number: PHEH2007US10509

PATIENT
  Age: 70 Year
  Sex: Female

DRUGS (1)
  1. TEKTURNA [Suspect]
     Dosage: 150 MG

REACTIONS (3)
  - DIZZINESS [None]
  - GOUT [None]
  - MENTAL IMPAIRMENT [None]
